FAERS Safety Report 5298818-9 (Version None)
Quarter: 2007Q2

REPORT INFORMATION
  Report Type: 
  Country: None (occurrence: None)
  Receive Date: 20070417
  Receipt Date: 20070410
  Transmission Date: 20071010
  Serious: Yes (Death)
  Sender: FDA-Public Use
  Company Number: IL-NOVOPROD-262591

PATIENT
  Age: 21 Year
  Sex: Female

DRUGS (3)
  1. NOVOSEVEN [Suspect]
     Indication: HAEMORRHAGE
     Dosage: 7.2 MG, QD
     Route: 042
     Dates: start: 20070402
  2. BLOOD CELLS, PACKED HUMAN [Concomitant]
     Dosage: 12 U, UNK
  3. FRESH FROZEN PLASMA [Concomitant]
     Dosage: 6 U, UNK

REACTIONS (1)
  - MULTI-ORGAN FAILURE [None]
